FAERS Safety Report 8785920 (Version 1)
Quarter: 2012Q4

REPORT INFORMATION
  Report Type: 
  Country: US (occurrence: US)
  Receive Date: 20120914
  Receipt Date: 20120914
  Transmission Date: 20130627
  Serious: Yes (Hospitalization, Other)
  Sender: FDA-Public Use
  Company Number: US-VERTEX PHARMACEUTICAL INC.-AE-2012-011939

PATIENT

DRUGS (5)
  1. INCIVEK [Suspect]
     Indication: HEPATITIS C
     Dosage: 750 mg, tid
     Route: 048
     Dates: start: 20120426, end: 20120716
  2. PEGASYS [Concomitant]
     Indication: HEPATITIS C
     Dosage: 180 ?g, 1x/week
     Dates: start: 20120426, end: 20120717
  3. RIBAVIRIN [Concomitant]
     Indication: HEPATITIS C
     Dosage: 800 mg, qd
     Dates: start: 20120426, end: 20120717
  4. ASMANEX [Concomitant]
  5. ALBUTEROL                          /00139501/ [Concomitant]

REACTIONS (2)
  - Deep vein thrombosis [Unknown]
  - Drug reaction with eosinophilia and systemic symptoms [Unknown]
